FAERS Safety Report 4349346-6 (Version None)
Quarter: 2004Q2

REPORT INFORMATION
  Report Type: 
  Country: None (occurrence: None)
  Receive Date: 20040428
  Receipt Date: 20040419
  Transmission Date: 20050107
  Serious: Yes (Other)
  Sender: FDA-Public Use
  Company Number: PHEH2004US04372

PATIENT
  Age: 50 Year
  Sex: Female

DRUGS (4)
  1. ZELNORM [Suspect]
     Indication: IRRITABLE BOWEL SYNDROME
     Dosage: 6 MG, BID
     Route: 048
     Dates: start: 20040213
  2. ALEVE [Suspect]
     Dates: start: 20040412
  3. ADVIL [Suspect]
  4. SYNTHROID [Concomitant]

REACTIONS (6)
  - ABDOMINAL PAIN [None]
  - BACK PAIN [None]
  - DYSPEPSIA [None]
  - HAEMORRHOIDS [None]
  - MUSCLE CRAMP [None]
  - RECTAL HAEMORRHAGE [None]
